FAERS Safety Report 12671980 (Version 1)
Quarter: 2016Q3

REPORT INFORMATION
  Report Type: Spontaneous
  Country: US (occurrence: None)
  Receive Date: 20160819
  Receipt Date: 20160819
  Transmission Date: 20161109
  Serious: Yes (Other)
  Sender: FDA-Public Use
  Company Number: None

PATIENT
  Age: 64 Year
  Sex: Female
  Weight: 83.01 kg

DRUGS (2)
  1. OMEPRAZOLE. [Suspect]
     Active Substance: OMEPRAZOLE
     Indication: GASTROOESOPHAGEAL REFLUX DISEASE
     Dosage: 40-1100 MG DAILY ORAL
     Route: 048
     Dates: start: 20160707, end: 20160808
  2. ESOMEPRAZOLE 40MG [Suspect]
     Active Substance: ESOMEPRAZOLE
     Route: 048
     Dates: start: 20160601, end: 20160707

REACTIONS (1)
  - Therapy non-responder [None]

NARRATIVE: CASE EVENT DATE: 20160808
